FAERS Safety Report 6878771-4 (Version None)
Quarter: 2010Q3

REPORT INFORMATION
  Report Type: 
  Country: None (occurrence: None)
  Receive Date: 20100728
  Receipt Date: 20100715
  Transmission Date: 20110219
  Serious: Yes (Disabling, Other)
  Sender: FDA-Public Use
  Company Number: GB-BAYER-201032770GPV

PATIENT
  Age: 30 Year
  Sex: Female

DRUGS (1)
  1. YASMIN [Suspect]
     Indication: CONTRACEPTION
     Route: 048
     Dates: start: 20100305, end: 20100625

REACTIONS (4)
  - DIZZINESS [None]
  - DYSPNOEA [None]
  - LABYRINTHITIS [None]
  - PANIC ATTACK [None]
